FAERS Safety Report 8983230 (Version 1)
Quarter: 2012Q4

REPORT INFORMATION
  Report Type: 
  Country: US (occurrence: US)
  Receive Date: 20121212
  Receipt Date: 20121212
  Transmission Date: 20130627
  Serious: Yes (Death)
  Sender: FDA-Public Use
  Company Number: US-ASTELLAS-1120889

PATIENT
  Age: 84 Year
  Sex: Male

DRUGS (4)
  1. TARCEVA [Suspect]
     Indication: BRONCHIAL CARCINOMA
     Route: 065
  2. ETOPOSIDE [Concomitant]
  3. CDDP [Concomitant]
  4. ETHANOL [Concomitant]

REACTIONS (1)
  - Death [Fatal]
